FAERS Safety Report 17579836 (Version 2)
Quarter: 2020Q2

REPORT INFORMATION
  Report Type: Report from Study
  Country: CA (occurrence: CA)
  Receive Date: 20200325
  Receipt Date: 20200508
  Transmission Date: 20200713
  Serious: Yes (Other)
  Sender: FDA-Public Use
  Company Number: CA-JNJFOC-20200325776

PATIENT
  Age: 45 Year
  Sex: Female
  Weight: 85 kg

DRUGS (4)
  1. FROVATRIPTAN SUCCINATE. [Concomitant]
     Active Substance: FROVATRIPTAN SUCCINATE
     Indication: PRODUCT USED FOR UNKNOWN INDICATION
     Route: 048
  2. IBUPROFEN. [Concomitant]
     Active Substance: IBUPROFEN
     Indication: PRODUCT USED FOR UNKNOWN INDICATION
     Route: 048
  3. REMICADE [Suspect]
     Active Substance: INFLIXIMAB
     Indication: ANKYLOSING SPONDYLITIS
     Dosage: 80TH INFUSION RECIVED ON 29-APR-2020
     Route: 042
     Dates: start: 20101222
  4. DIPHENHYDRAMINE                    /00455701/ [Concomitant]
     Active Substance: DIPHENHYDRAMINE
     Indication: PREMEDICATION
     Route: 042

REACTIONS (5)
  - Chest discomfort [Recovered/Resolved]
  - Tooth disorder [Recovered/Resolved]
  - Jaw disorder [Recovered/Resolved]
  - Infusion related reaction [Recovered/Resolved]
  - Cough [Recovered/Resolved]

NARRATIVE: CASE EVENT DATE: 20200316
